FAERS Safety Report 10666478 (Version 2)
Quarter: 2015Q1

REPORT INFORMATION
  Report Type: Spontaneous
  Country: US (occurrence: US)
  Receive Date: 20141221
  Receipt Date: 20150320
  Transmission Date: 20150720
  Serious: No
  Sender: FDA-Public Use
  Company Number: US-GLAXOSMITHKLINE-US2014037100

PATIENT
  Age: 69 Year
  Sex: Female

DRUGS (2)
  1. LOVAZA [Suspect]
     Active Substance: OMEGA-3-ACID ETHYL ESTERS
     Indication: NEUROPATHY PERIPHERAL
     Dosage: 3 DF, QD
     Dates: start: 2010
  2. LOVAZA [Suspect]
     Active Substance: OMEGA-3-ACID ETHYL ESTERS
     Dosage: UNK

REACTIONS (4)
  - Product quality issue [Unknown]
  - Dysgeusia [Not Recovered/Not Resolved]
  - Eructation [Not Recovered/Not Resolved]
  - Off label use [Unknown]

NARRATIVE: CASE EVENT DATE: 20141214
